FAERS Safety Report 7325359-7 (Version None)
Quarter: 2011Q1

REPORT INFORMATION
  Report Type: 
  Country: None (occurrence: None)
  Receive Date: 20110218
  Receipt Date: 20110203
  Transmission Date: 20110831
  Serious: Yes (Hospitalization, Other)
  Sender: FDA-Public Use
  Company Number: AUR-APL-2011-00506

PATIENT
  Sex: Female
  Weight: 4.42 kg

DRUGS (3)
  1. RISPERDONE [Suspect]
     Indication: BIPOLAR DISORDER
     Dosage: SEE IMAGE
     Route: 064
     Dates: start: 20070101
  2. RISPERDONE [Suspect]
     Indication: BIPOLAR DISORDER
     Dosage: SEE IMAGE
     Route: 064
     Dates: start: 20070101, end: 20070101
  3. RISPERDONE [Suspect]
     Indication: BIPOLAR DISORDER
     Dosage: SEE IMAGE
     Route: 064
     Dates: start: 20080101

REACTIONS (4)
  - DRUG EXPOSURE VIA BREAST MILK [None]
  - CLAVICLE FRACTURE [None]
  - MATERNAL DRUGS AFFECTING FOETUS [None]
  - LARGE FOR DATES BABY [None]
